FAERS Safety Report 23513419 (Version 3)
Quarter: 2024Q4

REPORT INFORMATION
  Report Type: Spontaneous
  Country: US (occurrence: US)
  Receive Date: 20240212
  Receipt Date: 20241226
  Transmission Date: 20250115
  Serious: Yes (Other)
  Sender: PFIZER
  Company Number: US-PFIZER INC-202400034964

PATIENT
  Age: 79 Year
  Sex: Male
  Weight: 64.41 kg

DRUGS (13)
  1. VYNDAMAX [Suspect]
     Active Substance: TAFAMIDIS
     Indication: Cardiac amyloidosis
     Dosage: 61 MG 1X5 PM
     Dates: start: 202004
  2. VYNDAMAX [Suspect]
     Active Substance: TAFAMIDIS
     Indication: Acquired ATTR amyloidosis
     Dosage: TAKE 1 CAPSULE (61 MG TOTAL) BY MOUTH DAILY
     Route: 048
  3. VYNDAMAX [Suspect]
     Active Substance: TAFAMIDIS
     Indication: Amyloidosis
     Dosage: 61MG ONCE A DAY WITH A GLASS OF WATER
     Dates: start: 202104
  4. ELIQUIS [Concomitant]
     Active Substance: APIXABAN
     Dosage: 1X MORNING 1X NIGHT
     Dates: start: 2016
  5. TORSEMIDE [Concomitant]
     Active Substance: TORSEMIDE
     Dosage: 2X MORNING 1 NIGHT 2X M,W,F
     Dates: start: 2017
  6. MIDODRINE [Concomitant]
     Active Substance: MIDODRINE
     Dosage: 1X 3 TIMES PER DAY
     Dates: start: 2022
  7. POTASSIUM CHLORIDE [Concomitant]
     Active Substance: POTASSIUM CHLORIDE
     Dosage: 1 MORNING 1 NIGHT
     Dates: start: 2023
  8. EPLERENONE [Concomitant]
     Active Substance: EPLERENONE
     Dosage: 1X MORNING 1X NIGHT
  9. JARDIANCE [Concomitant]
     Active Substance: EMPAGLIFLOZIN
     Dosage: 1X MORNING
  10. MONTELUKAST [Concomitant]
     Active Substance: MONTELUKAST SODIUM
     Dosage: 1X MORNING
  11. ROSUVASTATIN [Concomitant]
     Active Substance: ROSUVASTATIN
     Dosage: 1 X MORNING
  12. LEVOTHYROXINE [Concomitant]
     Active Substance: LEVOTHYROXINE
     Dosage: 1X NIGHT
  13. OMEPRAZOLE [Concomitant]
     Active Substance: OMEPRAZOLE
     Dosage: 1 EARLY MORNING

REACTIONS (12)
  - Dementia Alzheimer^s type [Recovering/Resolving]
  - Atrial fibrillation [Unknown]
  - Atrial tachycardia [Not Recovered/Not Resolved]
  - Arthralgia [Not Recovered/Not Resolved]
  - Arthritis [Not Recovered/Not Resolved]
  - Swelling [Not Recovered/Not Resolved]
  - Anaemia [Unknown]
  - Sensitivity to weather change [Unknown]
  - Haemoglobin decreased [Unknown]
  - Glycosylated haemoglobin increased [Unknown]
  - Low density lipoprotein increased [Unknown]
  - Intervertebral disc disorder [Unknown]

NARRATIVE: CASE EVENT DATE: 20220101
